FAERS Safety Report 18618439 (Version 1)
Quarter: 2020Q4

REPORT INFORMATION
  Report Type: Report from Study
  Country: US (occurrence: US)
  Receive Date: 20201215
  Receipt Date: 20201215
  Transmission Date: 20210114
  Serious: Yes (Death)
  Sender: FDA-Public Use
  Company Number: US-ASTRAZENECA-2020SF65471

PATIENT
  Age: 18838 Day
  Sex: Female

DRUGS (3)
  1. TAGRISSO [Suspect]
     Active Substance: OSIMERTINIB
     Indication: LUNG CARCINOMA CELL TYPE UNSPECIFIED STAGE 0
     Route: 048
     Dates: start: 20200324, end: 202010
  2. TAGRISSO [Suspect]
     Active Substance: OSIMERTINIB
     Indication: MALIGNANT NERVOUS SYSTEM NEOPLASM
     Route: 048
     Dates: start: 20200324, end: 202010
  3. TAGRISSO [Suspect]
     Active Substance: OSIMERTINIB
     Indication: BRAIN NEOPLASM MALIGNANT
     Route: 048
     Dates: start: 20200324, end: 202010

REACTIONS (1)
  - Death [Fatal]

NARRATIVE: CASE EVENT DATE: 20201027
